FAERS Safety Report 9644471 (Version 2)
Quarter: 2013Q4

REPORT INFORMATION
  Report Type: Spontaneous
  Country: AT (occurrence: AT)
  Receive Date: 20131025
  Receipt Date: 20131101
  Transmission Date: 20140711
  Serious: Yes (Death, Life-Threatening, Hospitalization, Other)
  Sender: FDA-Public Use
  Company Number: AT-ACTELION-A-CH2013-90347

PATIENT
  Age: 21 Year
  Sex: Female
  Weight: 67.5 kg

DRUGS (6)
  1. TRACLEER [Suspect]
     Indication: PULMONARY ARTERIAL HYPERTENSION
     Dosage: 125 MG, BID
     Route: 048
     Dates: start: 20090930, end: 20131021
  2. TRACLEER [Suspect]
     Dosage: 62.5 MG, BID
     Route: 048
     Dates: start: 20090831
  3. VENTAVIS BAYER SCHERING [Concomitant]
     Indication: PULMONARY ARTERIAL HYPERTENSION
     Route: 055
  4. ARTERENOL [Concomitant]
  5. REVATIO [Concomitant]
  6. REMODULIN [Concomitant]
     Dosage: UNK
     Dates: start: 20110803

REACTIONS (10)
  - Right ventricular failure [Fatal]
  - Epstein-Barr virus infection [Fatal]
  - Viral tonsillitis [Fatal]
  - Thrombocytopenia [Unknown]
  - Hypotension [Fatal]
  - Loss of consciousness [Fatal]
  - Low cardiac output syndrome [Fatal]
  - Aspartate aminotransferase increased [Unknown]
  - C-reactive protein increased [Fatal]
  - Platelet count decreased [Unknown]
